FAERS Safety Report 5426051-6 (Version None)
Quarter: 2007Q3

REPORT INFORMATION
  Report Type: 
  Country: None (occurrence: None)
  Receive Date: 20070824
  Receipt Date: 20070824
  Transmission Date: 20080115
  Serious: Yes (Hospitalization)
  Sender: FDA-Public Use
  Company Number: None

PATIENT
  Sex: Male
  Weight: 77 kg

DRUGS (3)
  1. CYTARABINE [Suspect]
     Dosage: 29600 MG
     Dates: end: 20070731
  2. ETOPOSIDE [Suspect]
     Dosage: 2700 MG
     Dates: end: 20070731
  3. G-CSF (FILGRASTIM, AMGEN) [Suspect]
     Dosage: 10920 MCG
     Dates: end: 20070822

REACTIONS (6)
  - CHILLS [None]
  - HAEMOPTYSIS [None]
  - INFUSION SITE ERYTHEMA [None]
  - INFUSION SITE REACTION [None]
  - PYREXIA [None]
  - WOUND SECRETION [None]
